FAERS Safety Report 6693294-3 (Version None)
Quarter: 2010Q2

REPORT INFORMATION
  Report Type: 
  Country: None (occurrence: None)
  Receive Date: 20100422
  Receipt Date: 20100414
  Transmission Date: 20101027
  Serious: Yes (Death, Hospitalization)
  Sender: FDA-Public Use
  Company Number: US-ABBOTT-10P-163-0623422-00

PATIENT
  Sex: Female
  Weight: 82.628 kg

DRUGS (6)
  1. HUMIRA [Suspect]
     Indication: RHEUMATOID ARTHRITIS
  2. ALPRAZOLAM [Concomitant]
     Indication: ANXIETY
  3. ZANTAC [Concomitant]
     Indication: BARRETT'S OESOPHAGUS
  4. CLONIDINE [Concomitant]
     Indication: HYPERTENSION
  5. LABETALOL HCL [Concomitant]
     Indication: HYPERTENSION
  6. DIOVAN [Concomitant]
     Indication: HYPERTENSION

REACTIONS (1)
  - ILL-DEFINED DISORDER [None]
